FAERS Safety Report 13063328 (Version 1)
Quarter: 2016Q4

REPORT INFORMATION
  Report Type: Spontaneous
  Country: AR (occurrence: AR)
  Receive Date: 20161227
  Receipt Date: 20161227
  Transmission Date: 20170207
  Serious: Yes (Other)
  Sender: FDA-Public Use
  Company Number: AR-UCBSA-2016049502

PATIENT
  Sex: Male

DRUGS (2)
  1. KEPPRA [Suspect]
     Active Substance: LEVETIRACETAM
     Dosage: UNK
     Route: 063
     Dates: start: 2016
  2. KEPPRA [Suspect]
     Active Substance: LEVETIRACETAM
     Indication: SEIZURE
     Dosage: 500 MG, 3X/DAY (TID)
     Route: 064
     Dates: start: 201606, end: 2016

REACTIONS (7)
  - Milk allergy [Unknown]
  - Premature baby [Unknown]
  - Mucous stools [Unknown]
  - Foetal exposure during pregnancy [Unknown]
  - Exposure during breast feeding [Unknown]
  - Foetal growth restriction [Unknown]
  - Haematochezia [Unknown]

NARRATIVE: CASE EVENT DATE: 2016
